FAERS Safety Report 18768215 (Version 5)
Quarter: 2021Q2

REPORT INFORMATION
  Report Type: Spontaneous
  Country: GB (occurrence: GB)
  Receive Date: 20210121
  Receipt Date: 20210420
  Transmission Date: 20210717
  Serious: Yes (Other)
  Sender: FDA-Public Use
  Company Number: GB-PFIZER INC-2021032073

PATIENT
  Sex: Female

DRUGS (6)
  1. ERGOCALCIFEROL. [Suspect]
     Active Substance: ERGOCALCIFEROL
     Dosage: UNK
  2. CHOLECALCIFEROL [Suspect]
     Active Substance: CHOLECALCIFEROL
     Dosage: 800 IU
  3. DOXAZOSIN MESILATE [Suspect]
     Active Substance: DOXAZOSIN MESYLATE
     Dosage: 10 UG, DAILY
  4. RAMIPRIL. [Suspect]
     Active Substance: RAMIPRIL
     Indication: OSTEOPOROSIS
     Dosage: UNK
  5. LEVOTHYROXINE. [Suspect]
     Active Substance: LEVOTHYROXINE
     Dosage: 1 DF
  6. LIDOCAINE. [Suspect]
     Active Substance: LIDOCAINE
     Indication: OSTEOPOROSIS
     Dosage: PATCHES 12 HOURS AT NIGHT

REACTIONS (9)
  - Eye infarction [Unknown]
  - Spinal fracture [Unknown]
  - Swelling face [Unknown]
  - Muscular weakness [Unknown]
  - Pain [Unknown]
  - Deafness [Unknown]
  - Pulmonary fibrosis [Unknown]
  - Diplopia [Unknown]
  - Off label use [Unknown]

NARRATIVE: CASE EVENT DATE: 201906
